FAERS Safety Report 10612198 (Version 1)
Quarter: 2014Q4

REPORT INFORMATION
  Report Type: Spontaneous
  Country: CH (occurrence: CH)
  Receive Date: 20141127
  Receipt Date: 20141127
  Transmission Date: 20150529
  Serious: Yes (Life-Threatening, Hospitalization, Other)
  Sender: FDA-Public Use
  Company Number: CH-ASTRAZENECA-2014SE88000

PATIENT
  Age: 50 Year
  Sex: Male
  Weight: 112 kg

DRUGS (8)
  1. GALVUMET [Concomitant]
     Active Substance: METFORMIN HYDROCHLORIDE\VILDAGLIPTIN
     Indication: TYPE 2 DIABETES MELLITUS
     Route: 048
     Dates: end: 20140801
  2. DIAMICRON MR [Concomitant]
     Active Substance: GLICLAZIDE
     Indication: TYPE 2 DIABETES MELLITUS
     Route: 048
     Dates: end: 20140801
  3. CRESTOR [Suspect]
     Active Substance: ROSUVASTATIN CALCIUM
     Indication: DYSLIPIDAEMIA
     Route: 048
     Dates: start: 201405, end: 20140801
  4. EXFORGE HCT [Suspect]
     Active Substance: AMLODIPINE BESYLATE\HYDROCHLOROTHIAZIDE\VALSARTAN
     Indication: ESSENTIAL HYPERTENSION
     Route: 048
     Dates: end: 20140801
  5. IRFEN (NON-AZ PRODUCT) [Suspect]
     Active Substance: IBUPROFEN
     Indication: PAIN MANAGEMENT
     Route: 048
     Dates: start: 201312, end: 201401
  6. NEXIUM [Concomitant]
     Active Substance: ESOMEPRAZOLE MAGNESIUM
     Indication: GASTROOESOPHAGEAL REFLUX DISEASE
     Route: 048
  7. CRESTOR [Suspect]
     Active Substance: ROSUVASTATIN CALCIUM
     Indication: DYSLIPIDAEMIA
     Route: 048
     Dates: start: 201310, end: 201405
  8. PONSTAN (NON-AZ PRODUCT) [Suspect]
     Active Substance: MEFENAMIC ACID
     Indication: PAIN MANAGEMENT
     Route: 048
     Dates: start: 201312, end: 201401

REACTIONS (8)
  - C-reactive protein increased [Unknown]
  - Fluid overload [None]
  - Gastrooesophageal reflux disease [Unknown]
  - Wrist fracture [Unknown]
  - Haemodialysis [None]
  - Renal failure [Recovered/Resolved]
  - Hypertension [Unknown]
  - Metabolic acidosis [None]

NARRATIVE: CASE EVENT DATE: 20140801
